FAERS Safety Report 6944431-4 (Version None)
Quarter: 2010Q3

REPORT INFORMATION
  Report Type: 
  Country: None (occurrence: None)
  Receive Date: 20100827
  Receipt Date: 20100823
  Transmission Date: 20110219
  Serious: Yes (Hospitalization)
  Sender: FDA-Public Use
  Company Number: US-RANBAXY-2010US-33879

PATIENT

DRUGS (3)
  1. CEPHALEXIN [Suspect]
     Indication: CELLULITIS
     Dosage: UNK, UNK
     Route: 065
  2. METOPROLOL [Concomitant]
     Indication: PRODUCT USED FOR UNKNOWN INDICATION
     Route: 065
  3. WARFARIN SODIUM [Concomitant]
     Indication: PRODUCT USED FOR UNKNOWN INDICATION
     Route: 065

REACTIONS (3)
  - JARISCH-HERXHEIMER REACTION [None]
  - LYME DISEASE [None]
  - RASH MACULO-PAPULAR [None]
